FAERS Safety Report 7573334-X (Version None)
Quarter: 2011Q2

REPORT INFORMATION
  Report Type: 
  Country: None (occurrence: None)
  Receive Date: 20110627
  Receipt Date: 20110614
  Transmission Date: 20111010
  Serious: Yes (Other)
  Sender: FDA-Public Use
  Company Number: PHEH2009US10830

PATIENT
  Sex: Female

DRUGS (22)
  1. LISINOPRIL [Concomitant]
  2. CIPROFLOXACIN [Concomitant]
  3. ARIMIDEX [Concomitant]
  4. AMBIEN [Concomitant]
  5. ORAL CONTRACEPTIVE NOS [Concomitant]
  6. CARBOPLATIN [Concomitant]
  7. ZOCOR [Concomitant]
  8. TAXOL [Concomitant]
  9. GEMZAR [Concomitant]
  10. FEMARA [Concomitant]
     Dosage: 2.5 MG, DAILY
     Route: 048
  11. XOPENEX [Concomitant]
     Dosage: 0.63 MG, BID
  12. KEFLEX [Concomitant]
     Dosage: 500 MG, TID
  13. ZOMETA [Suspect]
     Dosage: UNK
     Route: 042
     Dates: start: 20040101
  14. OXYCODONE HCL [Concomitant]
  15. METFORMIN HCL [Concomitant]
  16. CEPHALEXIN [Concomitant]
  17. PENICILLIN [Concomitant]
  18. TAMOXIFEN CITRATE [Concomitant]
  19. CLINDAMYCIN [Concomitant]
  20. FASLODEX [Concomitant]
  21. CISPLATIN [Concomitant]
  22. SYMBICORT [Concomitant]

REACTIONS (28)
  - TOOTH LOSS [None]
  - BONE LESION [None]
  - HYPERCHOLESTEROLAEMIA [None]
  - BRONCHIAL HYPERREACTIVITY [None]
  - INTRAOCULAR MELANOMA [None]
  - PAIN IN JAW [None]
  - ARTHRALGIA [None]
  - NECK PAIN [None]
  - BREAST CALCIFICATIONS [None]
  - ARTHRITIS [None]
  - BRONCHITIS [None]
  - PAIN [None]
  - ANXIETY [None]
  - SINUSITIS [None]
  - INSOMNIA [None]
  - FIBROMYALGIA [None]
  - JOINT DISLOCATION [None]
  - OSTEONECROSIS OF JAW [None]
  - BURNS SECOND DEGREE [None]
  - BURSITIS [None]
  - FATIGUE [None]
  - ARTERIOSCLEROSIS [None]
  - ATELECTASIS [None]
  - JOINT EFFUSION [None]
  - HUMERUS FRACTURE [None]
  - DYSPNOEA [None]
  - CONTUSION [None]
  - BONE MARROW OEDEMA [None]
